FAERS Safety Report 6444484-6 (Version None)
Quarter: 2009Q4

REPORT INFORMATION
  Report Type: 
  Country: None (occurrence: None)
  Receive Date: 20091117
  Receipt Date: 20091117
  Transmission Date: 20100525
  Serious: Yes (Hospitalization)
  Sender: FDA-Public Use
  Company Number: None

PATIENT
  Sex: Female
  Weight: 84.9 kg

DRUGS (9)
  1. VINORELBINE [Suspect]
     Indication: BREAST CANCER METASTATIC
     Dosage: VINORELBINE 20MG WEEKLY X 3 WEEKS/M IV BOLUS
     Route: 040
     Dates: start: 20091028, end: 20091111
  2. MYLANTA [Concomitant]
  3. NEURONTIN [Concomitant]
  4. PRILOSEC [Concomitant]
  5. TUMS [Concomitant]
  6. VITAMIN B COMPLEX CAP [Concomitant]
  7. ZOFRAN [Concomitant]
  8. COMPAZINE [Concomitant]
  9. KAPIDEX [Concomitant]

REACTIONS (4)
  - CATHETER SITE ERYTHEMA [None]
  - CATHETER SITE PAIN [None]
  - NEUTROPHIL COUNT DECREASED [None]
  - PYREXIA [None]
